FAERS Safety Report 4515099-1 (Version None)
Quarter: 2004Q4

REPORT INFORMATION
  Report Type: 
  Country: None (occurrence: None)
  Receive Date: 20041201
  Receipt Date: 20041116
  Transmission Date: 20050328
  Serious: Yes (Hospitalization, Other)
  Sender: FDA-Public Use
  Company Number: PHRM2004FR03355

PATIENT
  Age: 59 Year
  Sex: Female

DRUGS (5)
  1. COAPROVEL [Suspect]
     Route: 048
  2. CLAMOXYL [Suspect]
     Indication: HELICOBACTER GASTRITIS
     Route: 048
     Dates: start: 20040617
  3. NAXY [Suspect]
     Indication: HELICOBACTER GASTRITIS
     Route: 048
     Dates: start: 20040617
  4. OGAST [Suspect]
     Indication: HELICOBACTER GASTRITIS
     Route: 048
     Dates: start: 20040617, end: 20040629
  5. TEGRETOL [Suspect]
     Route: 048

REACTIONS (11)
  - ABDOMINAL DISTENSION [None]
  - ABDOMINAL PAIN UPPER [None]
  - ANOREXIA [None]
  - BLOOD LACTATE DEHYDROGENASE INCREASED [None]
  - DRUG INTERACTION [None]
  - FALL [None]
  - HELICOBACTER GASTRITIS [None]
  - HYPOKALAEMIA [None]
  - HYPONATRAEMIA [None]
  - NAUSEA [None]
  - VOMITING [None]
